FAERS Safety Report 7627960 (Version 4)
Quarter: 2012Q4

REPORT INFORMATION
  Report Type: 
  Country: US (occurrence: US)
  Receive Date: 20101013
  Receipt Date: 20120913
  Transmission Date: 20130627
  Serious: Yes (Other)
  Sender: FDA-Public Use
  Company Number: US-ASTRAZENECA-2009SE24996

PATIENT
  Age: 69 Year
  Sex: Female
  Weight: 80.7 kg

DRUGS (2)
  1. SYMBICORT PMDI [Suspect]
     Dosage: 80/4.5 MG BID
     Route: 055
     Dates: start: 20090912, end: 20091012
  2. SYMBICORT PMDI [Suspect]
     Dosage: 160/4.5 MG FREQUENCY UNKNOWN
     Route: 055

REACTIONS (7)
  - Cyanosis [Unknown]
  - Lacrimation increased [Unknown]
  - Nasopharyngitis [Unknown]
  - Asthma [Unknown]
  - Abasia [Unknown]
  - Aphonia [Unknown]
  - Drug dose omission [Unknown]
